FAERS Safety Report 9483405 (Version 2)
Quarter: 2013Q3

REPORT INFORMATION
  Report Type: Report from Study
  Country: HU (occurrence: HU)
  Receive Date: 20130828
  Receipt Date: 20130911
  Transmission Date: 20140515
  Serious: Yes (Death)
  Sender: FDA-Public Use
  Company Number: HU-ROCHE-1267553

PATIENT
  Age: 68 Year
  Sex: Male
  Weight: 60 kg

DRUGS (3)
  1. PEG-INTERFERON ALFA 2A [Suspect]
     Indication: HEPATITIS C
     Route: 058
     Dates: start: 20130628, end: 20130815
  2. RIBAVIRIN [Suspect]
     Indication: HEPATITIS C
     Route: 048
     Dates: start: 20130628, end: 20130815
  3. TELAPREVIR [Suspect]
     Indication: HEPATITIS C
     Dosage: DOSE: 2*3 TABL
     Route: 048
     Dates: start: 20130628, end: 20130815

REACTIONS (1)
  - Oesophageal varices haemorrhage [Fatal]
